FAERS Safety Report 16826698 (Version 1)
Quarter: 2019Q3

REPORT INFORMATION
  Report Type: Spontaneous
  Country: US (occurrence: US)
  Receive Date: 20190727
  Receipt Date: 20190727
  Transmission Date: 20191005
  Serious: Yes (Hospitalization)
  Sender: FDA-Public Use
  Company Number: None

PATIENT
  Age: 68 Year
  Sex: Male

DRUGS (1)
  1. WARFARIN [Suspect]
     Active Substance: WARFARIN
     Indication: CEREBROVASCULAR ACCIDENT PROPHYLAXIS
     Dates: start: 20110617, end: 20190706

REACTIONS (6)
  - International normalised ratio abnormal [None]
  - Gingival bleeding [None]
  - Epistaxis [None]
  - Melaena [None]
  - Haemoptysis [None]
  - Haemorrhage [None]

NARRATIVE: CASE EVENT DATE: 20190705
